FAERS Safety Report 6420105-3 (Version None)
Quarter: 2009Q4

REPORT INFORMATION
  Report Type: 
  Country: None (occurrence: None)
  Receive Date: 20091029
  Receipt Date: 20091021
  Transmission Date: 20100525
  Serious: Yes (Hospitalization)
  Sender: FDA-Public Use
  Company Number: US-ABBOTT-09P-163-0604377-00

PATIENT
  Sex: Female
  Weight: 59.02 kg

DRUGS (6)
  1. HUMIRA [Suspect]
     Indication: CROHN'S DISEASE
     Route: 058
     Dates: start: 20090601
  2. LOMOTIL [Concomitant]
     Indication: CROHN'S DISEASE
     Route: 048
  3. ZOFRAN ODT [Concomitant]
     Indication: NAUSEA
     Route: 048
  4. PHENERGAN HCL [Concomitant]
     Indication: NAUSEA
     Dosage: UNSURE OF STRENGTH
     Route: 048
  5. VICODIN [Concomitant]
     Indication: PAIN
     Route: 048
  6. CELEBREX [Concomitant]
     Indication: DRUG USE FOR UNKNOWN INDICATION
     Dosage: UNSURE OF STRENGTH
     Route: 048

REACTIONS (4)
  - DEHYDRATION [None]
  - INFLUENZA [None]
  - PAIN [None]
  - TEARFULNESS [None]
